FAERS Safety Report 9540523 (Version 1)
Quarter: 2013Q3

REPORT INFORMATION
  Report Type: Spontaneous
  Country: US (occurrence: US)
  Receive Date: 20130920
  Receipt Date: 20130920
  Transmission Date: 20140515
  Serious: Yes (Other)
  Sender: FDA-Public Use
  Company Number: US-PFIZER INC-2013271541

PATIENT
  Age: 65 Year
  Sex: Female
  Weight: 79 kg

DRUGS (2)
  1. CHANTIX [Suspect]
     Indication: SMOKING CESSATION THERAPY
     Dosage: 0.5 MG, 1X/DAY
     Dates: start: 2010
  2. CHANTIX [Suspect]
     Dosage: UNK

REACTIONS (3)
  - Back disorder [Unknown]
  - Abnormal dreams [Unknown]
  - Malaise [Unknown]
